FAERS Safety Report 6518963-7 (Version None)
Quarter: 2009Q4

REPORT INFORMATION
  Report Type: 
  Country: None (occurrence: None)
  Receive Date: 20091228
  Receipt Date: 20091215
  Transmission Date: 20100525
  Serious: No
  Sender: FDA-Public Use
  Company Number: JP-PFIZER INC-2009307577

PATIENT
  Age: 35 Year
  Sex: Female

DRUGS (2)
  1. ZITHROMAC SR [Suspect]
     Dosage: 2 G, 1X/DAY
     Route: 048
     Dates: start: 20091123, end: 20091123
  2. VOLTAREN [Concomitant]
     Dosage: UNK

REACTIONS (1)
  - HYPOAESTHESIA FACIAL [None]
